FAERS Safety Report 4379154-1 (Version None)
Quarter: 2004Q2

REPORT INFORMATION
  Report Type: 
  Country: None (occurrence: None)
  Receive Date: 20040614
  Receipt Date: 20040602
  Transmission Date: 20050107
  Serious: Yes (Disabling, Other)
  Sender: FDA-Public Use
  Company Number: US-JNJFOC-20040601622

PATIENT
  Age: 78 Year
  Sex: Female

DRUGS (3)
  1. REMICADE [Suspect]
     Indication: RHEUMATOID ARTHRITIS
     Dosage: 1 IN 8 WEEK, INTRAVENOUS
     Route: 042
     Dates: start: 20030903
  2. STANTON (CHOLESTEROL AND TRIGLYCERIDE REDUCERS) [Concomitant]
  3. LAMISIL [Concomitant]

REACTIONS (1)
  - BLINDNESS UNILATERAL [None]
